FAERS Safety Report 9587391 (Version 1)
Quarter: 2013Q4

REPORT INFORMATION
  Report Type: Spontaneous
  Country: FR (occurrence: FR)
  Receive Date: 20131003
  Receipt Date: 20131003
  Transmission Date: 20140711
  Serious: Yes (Death, Other)
  Sender: FDA-Public Use
  Company Number: FR-B.I. PHARMACEUTICALS,INC./RIDGEFIELD-2013-FF-02418FF

PATIENT
  Age: 69 Year
  Sex: Male

DRUGS (1)
  1. ATROVENT [Suspect]
     Indication: RESPIRATORY DISTRESS
     Route: 055
     Dates: start: 20130702, end: 20130702

REACTIONS (2)
  - Multi-organ failure [Fatal]
  - Bronchospasm [Recovered/Resolved]
